FAERS Safety Report 4616689-8 (Version None)
Quarter: 2005Q1

REPORT INFORMATION
  Report Type: 
  Country: None (occurrence: None)
  Receive Date: 20050318
  Receipt Date: 20050314
  Transmission Date: 20050727
  Serious: Yes (Hospitalization)
  Sender: FDA-Public Use
  Company Number: 2005-00896

PATIENT
  Age: 57 Year
  Sex: Female
  Weight: 52.2 kg

DRUGS (4)
  1. NICOTINE POLACRILEX MINT(WATSON LABORATORIES) (NICOTINE POLACRILEX) GU [Suspect]
     Indication: NICOTINE DEPENDENCE
     Dosage: SEE IMAGE
     Route: 002
     Dates: start: 20041001, end: 20050304
  2. NICOTINE POLACRILEX MINT(WATSON LABORATORIES) (NICOTINE POLACRILEX) GU [Suspect]
     Indication: NICOTINE DEPENDENCE
     Dosage: SEE IMAGE
     Route: 002
     Dates: start: 20050305, end: 20050310
  3. NICOTINE POLACRILEX MINT(WATSON LABORATORIES) (NICOTINE POLACRILEX) GU [Suspect]
     Indication: NICOTINE DEPENDENCE
     Dosage: SEE IMAGE
     Route: 002
     Dates: start: 20050314, end: 20050314
  4. NICOTINE [Suspect]

REACTIONS (4)
  - DYSPNOEA [None]
  - HYPOAESTHESIA [None]
  - NICOTINE DEPENDENCE [None]
  - PARAESTHESIA ORAL [None]
